FAERS Safety Report 17036422 (Version 1)
Quarter: 2019Q4

REPORT INFORMATION
  Report Type: Spontaneous
  Country: US (occurrence: US)
  Receive Date: 20191114
  Receipt Date: 20191114
  Transmission Date: 20200122
  Serious: Yes (Disabling)
  Sender: FDA-Public Use
  Company Number: None

PATIENT
  Age: 39 Year
  Sex: Male
  Weight: 102.6 kg

DRUGS (2)
  1. ASSURED NASAL RELIEF [Suspect]
     Active Substance: OXYMETAZOLINE HYDROCHLORIDE
     Indication: SINUS CONGESTION
     Dosage: ?          QUANTITY:2 SPRAY(S);?
     Route: 055
     Dates: start: 20191031, end: 20191031
  2. ASSURED NASAL RELIEF [Suspect]
     Active Substance: OXYMETAZOLINE HYDROCHLORIDE
     Indication: NASAL CONGESTION
     Dosage: ?          QUANTITY:2 SPRAY(S);?
     Route: 055
     Dates: start: 20191031, end: 20191031

REACTIONS (8)
  - Nasal pruritus [None]
  - Product substitution issue [None]
  - Pain [None]
  - Pruritus [None]
  - Paranasal sinus discomfort [None]
  - Burning sensation [None]
  - Nasal discomfort [None]
  - Sinus disorder [None]

NARRATIVE: CASE EVENT DATE: 20191031
